FAERS Safety Report 21077567 (Version 2)
Quarter: 2022Q3

REPORT INFORMATION
  Report Type: Spontaneous
  Country: US (occurrence: US)
  Receive Date: 20220713
  Receipt Date: 20220914
  Transmission Date: 20221027
  Serious: No
  Sender: FDA-Public Use
  Company Number: US-PADAGIS-2022PAD00038

PATIENT

DRUGS (3)
  1. IMIQUIMOD [Suspect]
     Active Substance: IMIQUIMOD
     Indication: Skin papilloma
     Dosage: UNK, TID
     Route: 065
  2. IMIQUIMOD [Suspect]
     Active Substance: IMIQUIMOD
     Dosage: 5XWEEK FOR 6 WEEKS
     Route: 065
  3. IMIQUIMOD [Suspect]
     Active Substance: IMIQUIMOD
     Dosage: 2XDAY THREE TIMES PER WEEK FOR 6 MONTHS
     Route: 065

REACTIONS (1)
  - Drug ineffective [Unknown]
